FAERS Safety Report 7367397-4 (Version None)
Quarter: 2011Q1

REPORT INFORMATION
  Report Type: 
  Country: None (occurrence: None)
  Receive Date: 20110311
  Receipt Date: 20110301
  Transmission Date: 20110831
  Serious: Yes (Other)
  Sender: FDA-Public Use
  Company Number: DKLU1068895

PATIENT
  Age: 34 Month
  Sex: Female

DRUGS (3)
  1. NATRIUM-VALPROATE (VALPROATE SODIUM) [Concomitant]
  2. LAMOTRIGINE [Concomitant]
  3. SABRIL [Suspect]
     Indication: INFANTILE SPASMS

REACTIONS (1)
  - RETINOGRAM ABNORMAL [None]
